FAERS Safety Report 7792994-1 (Version None)
Quarter: 2011Q4

REPORT INFORMATION
  Report Type: 
  Country: None (occurrence: None)
  Receive Date: 20111003
  Receipt Date: 20110929
  Transmission Date: 20120403
  Serious: Yes (Death)
  Sender: FDA-Public Use
  Company Number: PHHY2011CH84752

PATIENT
  Sex: Male
  Weight: 75 kg

DRUGS (3)
  1. PREDNISONE [Concomitant]
  2. SPIRIVA [Concomitant]
  3. ONBREZ [Suspect]
     Indication: CHRONIC OBSTRUCTIVE PULMONARY DISEASE
     Dosage: 150 UG, UNK
     Dates: start: 20110623

REACTIONS (1)
  - CARDIO-RESPIRATORY ARREST [None]
